FAERS Safety Report 12598538 (Version 1)
Quarter: 2016Q3

REPORT INFORMATION
  Report Type: Spontaneous
  Country: IT (occurrence: IT)
  Receive Date: 20160727
  Receipt Date: 20160727
  Transmission Date: 20161109
  Serious: Yes (Hospitalization)
  Sender: FDA-Public Use
  Company Number: IT-TEVA-679236ACC

PATIENT
  Age: 22 Year
  Sex: Female

DRUGS (3)
  1. NORITREN - LUNDBECK ITALIA S.P.A. [Suspect]
     Active Substance: NORTRIPTYLINE HYDROCHLORIDE
     Indication: SUICIDE ATTEMPT
     Route: 048
     Dates: start: 20160305, end: 20160305
  2. XANAX [Suspect]
     Active Substance: ALPRAZOLAM
     Indication: SUICIDE ATTEMPT
     Route: 048
     Dates: start: 20160305, end: 20160305
  3. PAROXETINE. [Suspect]
     Active Substance: PAROXETINE
     Indication: SUICIDE ATTEMPT
     Route: 048
     Dates: start: 20160305, end: 20160305

REACTIONS (3)
  - Drug abuse [Unknown]
  - Toxicity to various agents [Unknown]
  - Suicide attempt [Unknown]

NARRATIVE: CASE EVENT DATE: 20160305
